FAERS Safety Report 4485562-0 (Version None)
Quarter: 2004Q4

REPORT INFORMATION
  Report Type: 
  Country: None (occurrence: None)
  Receive Date: 20041026
  Receipt Date: 20040928
  Transmission Date: 20050328
  Serious: Yes (Other)
  Sender: FDA-Public Use
  Company Number: JP-MERCK-0410USA00221

PATIENT
  Age: 80 Year
  Sex: Male

DRUGS (8)
  1. PEPCID [Suspect]
     Indication: GASTRIC ULCER
     Route: 042
     Dates: start: 20040805, end: 20040901
  2. LASIX [Concomitant]
     Route: 042
     Dates: start: 20040806, end: 20040922
  3. CEFOTIAM HYDROCHLORIDE [Concomitant]
     Route: 042
     Dates: start: 20040922
  4. CARBENIN [Concomitant]
     Route: 042
  5. BUMINATE [Concomitant]
     Route: 042
     Dates: start: 20040806, end: 20040810
  6. ALEVIATIN [Concomitant]
     Route: 042
     Dates: start: 20040809
  7. CEFAZOLIN [Concomitant]
     Route: 042
     Dates: start: 20040823, end: 20040921
  8. SOLDACTONE [Concomitant]
     Route: 042
     Dates: start: 20040811, end: 20040909

REACTIONS (2)
  - HAEMOGLOBIN DECREASED [None]
  - WHITE BLOOD CELL COUNT DECREASED [None]
